FAERS Safety Report 5786801-6 (Version None)
Quarter: 2008Q2

REPORT INFORMATION
  Report Type: 
  Country: None (occurrence: None)
  Receive Date: 20080620
  Receipt Date: 20080616
  Transmission Date: 20081010
  Serious: Yes (Other)
  Sender: FDA-Public Use
  Company Number: CHPA2008US10059

PATIENT
  Sex: Male

DRUGS (1)
  1. EXCEDRIN (MIGRAINE) [Suspect]
     Dosage: 25 DF, ONCE/SINGLE, ORAL
     Route: 048
     Dates: start: 20080612

REACTIONS (5)
  - APHASIA [None]
  - GAIT DISTURBANCE [None]
  - HYPERSOMNIA [None]
  - OVERDOSE [None]
  - SKIN DISCOLOURATION [None]
